FAERS Safety Report 5522147-9 (Version None)
Quarter: 2007Q4

REPORT INFORMATION
  Report Type: 
  Country: None (occurrence: None)
  Receive Date: 20071120
  Receipt Date: 20071108
  Transmission Date: 20080405
  Serious: Yes (Death, Life-Threatening, Hospitalization)
  Sender: FDA-Public Use
  Company Number: FR-ELI_LILLY_AND_COMPANY-FR200710004896

PATIENT
  Age: 73 Year
  Sex: Male
  Weight: 99 kg

DRUGS (4)
  1. PEMETREXED [Suspect]
     Indication: BRONCHIAL CARCINOMA
     Dosage: 500 MG/M2, OTHER
     Route: 042
     Dates: start: 20070718
  2. FOLIC ACID [Concomitant]
     Indication: VITAMIN SUPPLEMENTATION
     Route: 048
  3. VITAMIN B-12 [Concomitant]
     Indication: VITAMIN SUPPLEMENTATION
     Route: 030
  4. DEXAMETHASONE [Concomitant]
     Indication: PROPHYLAXIS

REACTIONS (4)
  - DIARRHOEA [None]
  - GENERAL PHYSICAL HEALTH DETERIORATION [None]
  - NEUTROPENIA [None]
  - SEPTIC SHOCK [None]
